FAERS Safety Report 7149482-5 (Version None)
Quarter: 2010Q4

REPORT INFORMATION
  Report Type: 
  Country: None (occurrence: None)
  Receive Date: 20101209
  Receipt Date: 20101202
  Transmission Date: 20110411
  Serious: Yes (Hospitalization)
  Sender: FDA-Public Use
  Company Number: US-US-EMD SERONO, INC.-7027503

PATIENT
  Sex: Female
  Weight: 47 kg

DRUGS (5)
  1. REBIF [Suspect]
     Indication: MULTIPLE SCLEROSIS
     Route: 058
     Dates: start: 20030401
  2. GABAPENTIN [Concomitant]
     Indication: MULTIPLE SCLEROSIS
  3. IMITREX [Concomitant]
     Indication: MIGRAINE
  4. PROTONIX [Concomitant]
     Indication: GASTRIC DISORDER
  5. VITAMIN D [Concomitant]

REACTIONS (8)
  - BLOOD POTASSIUM DECREASED [None]
  - FATIGUE [None]
  - FEELING ABNORMAL [None]
  - MIGRAINE [None]
  - POST PROCEDURAL HAEMORRHAGE [None]
  - PYREXIA [None]
  - SARCOIDOSIS [None]
  - SINUSITIS [None]
